FAERS Safety Report 7476948-0 (Version None)
Quarter: 2011Q2

REPORT INFORMATION
  Report Type: 
  Country: None (occurrence: None)
  Receive Date: 20110512
  Receipt Date: 20100602
  Transmission Date: 20111010
  Serious: No
  Sender: FDA-Public Use
  Company Number: US-AMGEN-TCS416170

PATIENT
  Age: 71 Year
  Sex: Female
  Weight: 70 kg

DRUGS (1)
  1. ENBREL [Suspect]
     Indication: PSORIASIS
     Dosage: 50 MG, 2 TIMES/WK
     Route: 058
     Dates: start: 20100521, end: 20100605

REACTIONS (9)
  - INJECTION SITE ERYTHEMA [None]
  - CHEST PAIN [None]
  - INJECTION SITE PAIN [None]
  - INJECTION SITE REACTION [None]
  - BACK PAIN [None]
  - INJECTION SITE PRURITUS [None]
  - PLEURITIC PAIN [None]
  - DYSPNOEA [None]
  - INJECTION SITE SWELLING [None]
